FAERS Safety Report 6522837-5 (Version None)
Quarter: 2009Q4

REPORT INFORMATION
  Report Type: 
  Country: None (occurrence: None)
  Receive Date: 20091222
  Receipt Date: 20091211
  Transmission Date: 20100525
  Serious: Yes (Other)
  Sender: FDA-Public Use
  Company Number: 1000010859

PATIENT
  Sex: Female

DRUGS (1)
  1. ESCITALOPRAM [Suspect]
     Dosage: 5 MG, ORAL
     Route: 048

REACTIONS (2)
  - OEDEMA MOUTH [None]
  - VERTIGO [None]
